FAERS Safety Report 12011796 (Version 1)
Quarter: 2016Q1

REPORT INFORMATION
  Report Type: Report from Study
  Country: US (occurrence: US)
  Receive Date: 20160205
  Receipt Date: 20160205
  Transmission Date: 20160526
  Serious: Yes (Other)
  Sender: FDA-Public Use
  Company Number: US-ABBVIE-15K-163-1450987-00

PATIENT
  Sex: Female
  Weight: 63.11 kg

DRUGS (18)
  1. HUMIRA [Suspect]
     Active Substance: ADALIMUMAB
     Indication: RHEUMATOID ARTHRITIS
     Route: 065
     Dates: start: 200602
  2. EVOXAC [Concomitant]
     Active Substance: CEVIMELINE HYDROCHLORIDE
     Indication: DRY MOUTH
  3. METHYLPREDNISOLONE. [Concomitant]
     Active Substance: METHYLPREDNISOLONE
     Indication: PRODUCT USED FOR UNKNOWN INDICATION
  4. PROZAC [Concomitant]
     Active Substance: FLUOXETINE HYDROCHLORIDE
     Indication: PRODUCT USED FOR UNKNOWN INDICATION
  5. CELEBREX [Concomitant]
     Active Substance: CELECOXIB
     Indication: PRODUCT USED FOR UNKNOWN INDICATION
  6. LYRICA [Concomitant]
     Active Substance: PREGABALIN
     Indication: POLYMYALGIA RHEUMATICA
  7. PERCOCET [Concomitant]
     Active Substance: ACETAMINOPHEN\OXYCODONE HYDROCHLORIDE
     Indication: PRODUCT USED FOR UNKNOWN INDICATION
  8. SYNTHROID [Concomitant]
     Active Substance: LEVOTHYROXINE SODIUM
     Indication: PRODUCT USED FOR UNKNOWN INDICATION
  9. POTASSIUM CHLORIDE. [Concomitant]
     Active Substance: POTASSIUM CHLORIDE
     Indication: PRODUCT USED FOR UNKNOWN INDICATION
  10. LIOTHYRONINE [Concomitant]
     Active Substance: LIOTHYRONINE
     Indication: PRODUCT USED FOR UNKNOWN INDICATION
  11. METHOTREXATE [Concomitant]
     Active Substance: METHOTREXATE
     Indication: PRODUCT USED FOR UNKNOWN INDICATION
  12. ROPINIROLE. [Concomitant]
     Active Substance: ROPINIROLE
     Indication: RESTLESS LEGS SYNDROME
  13. TEMAZEPAM. [Concomitant]
     Active Substance: TEMAZEPAM
     Indication: SLEEP DISORDER THERAPY
  14. AMOXICILLIN. [Concomitant]
     Active Substance: AMOXICILLIN
     Indication: TOOTH DISORDER
  15. IRON [Concomitant]
     Active Substance: IRON
     Indication: PRODUCT USED FOR UNKNOWN INDICATION
  16. GABAPENTIN. [Concomitant]
     Active Substance: GABAPENTIN
     Indication: PRODUCT USED FOR UNKNOWN INDICATION
  17. WELLBUTRIN [Concomitant]
     Active Substance: BUPROPION HYDROCHLORIDE
     Indication: DEPRESSED MOOD
  18. FENTANYL. [Concomitant]
     Active Substance: FENTANYL
     Indication: PRODUCT USED FOR UNKNOWN INDICATION

REACTIONS (3)
  - Cataract [Not Recovered/Not Resolved]
  - Cataract [Recovered/Resolved]
  - Product colour issue [Unknown]
